FAERS Safety Report 4412788-4 (Version None)
Quarter: 2004Q3

REPORT INFORMATION
  Report Type: 
  Country: None (occurrence: None)
  Receive Date: 20040730
  Receipt Date: 20040730
  Transmission Date: 20050211
  Serious: Yes (Hospitalization)
  Sender: FDA-Public Use
  Company Number: None

PATIENT
  Age: 81 Year
  Sex: Male
  Weight: 95.5 kg

DRUGS (11)
  1. AMLODIPINE [Suspect]
     Indication: HYPERTENSION
     Dosage: 10 MG DAILY
     Dates: start: 20030513, end: 20040405
  2. LOVASTATIN [Concomitant]
  3. ATENOLOL [Concomitant]
  4. ENALAPRIL MALEATE [Concomitant]
  5. FUROSEMIDE [Concomitant]
  6. ISOSORBIDE DINITRATE [Concomitant]
  7. ASPIRIN [Concomitant]
  8. GEMFIBROZIL [Concomitant]
  9. TRIAMCINOLONE ACETONIDE [Concomitant]
  10. HUMULIN N [Concomitant]
  11. GLYBURIDE [Concomitant]

REACTIONS (1)
  - OEDEMA [None]
